FAERS Safety Report 7094491-8 (Version None)
Quarter: 2010Q4

REPORT INFORMATION
  Report Type: 
  Country: None (occurrence: None)
  Receive Date: 20101110
  Receipt Date: 20101101
  Transmission Date: 20110411
  Serious: Yes (Hospitalization, Disabling)
  Sender: FDA-Public Use
  Company Number: JP-ASTRAZENECA-2010SE43325

PATIENT
  Age: 69 Year
  Sex: Male
  Weight: 62 kg

DRUGS (2)
  1. ROPIVACAINE HYDROCHLORIDE [Suspect]
     Indication: POSTOPERATIVE ANALGESIA
     Dosage: 10 MG/ EVERY HOUR, MIXTURE OF ANAPEINE 288 ML AND FENTANYL 12 ML
     Route: 008
     Dates: start: 20100907, end: 20100910
  2. FENTANYL CITRATE [Suspect]
     Indication: POSTOPERATIVE ANALGESIA
     Dosage: 3 ML/ EVERY HOUR, MIXTURE OF ANAPEINE 288 ML AND FENTANYL 12 ML
     Route: 008
     Dates: start: 20100907, end: 20100907

REACTIONS (11)
  - ANAESTHESIA [None]
  - BONE PAIN [None]
  - CONSTIPATION [None]
  - GAIT DISTURBANCE [None]
  - HYPOAESTHESIA [None]
  - INSOMNIA [None]
  - MOVEMENT DISORDER [None]
  - MUSCULAR WEAKNESS [None]
  - MUSCULOSKELETAL PAIN [None]
  - NERVOUS SYSTEM DISORDER [None]
  - NEURITIS [None]
